FAERS Safety Report 13474147 (Version 1)
Quarter: 2017Q2

REPORT INFORMATION
  Report Type: Spontaneous
  Country: US (occurrence: US)
  Receive Date: 20170424
  Receipt Date: 20170424
  Transmission Date: 20170830
  Serious: No
  Sender: FDA-Public Use
  Company Number: US-SA-2016SA189929

PATIENT
  Age: 79 Year
  Sex: Male

DRUGS (1)
  1. ENOXAPARIN SODIUM - WINTHROP [Suspect]
     Active Substance: ENOXAPARIN SODIUM
     Indication: DEEP VEIN THROMBOSIS
     Dosage: PRODUCT START DATE 6 MONTHS AGO
     Route: 051

REACTIONS (4)
  - Injection site bruising [Unknown]
  - Intentional product misuse [Unknown]
  - Petechiae [Not Recovered/Not Resolved]
  - Device malfunction [Unknown]
